FAERS Safety Report 7037509-0 (Version None)
Quarter: 2010Q4

REPORT INFORMATION
  Report Type: 
  Country: None (occurrence: None)
  Receive Date: 20101011
  Receipt Date: 20100930
  Transmission Date: 20110411
  Serious: Yes (Hospitalization)
  Sender: FDA-Public Use
  Company Number: B0675036A

PATIENT
  Sex: Male

DRUGS (3)
  1. AUGMENTIN '125' [Suspect]
     Indication: EMPHYSEMA
     Dosage: 750MG PER DAY
     Route: 048
     Dates: start: 20100730, end: 20100831
  2. PASETOCIN [Concomitant]
     Indication: EMPHYSEMA
     Dosage: 750MG PER DAY
     Route: 048
     Dates: start: 20100730, end: 20100831
  3. FAMOTIDINE [Concomitant]
     Dosage: 20MG PER DAY
     Route: 048
     Dates: start: 20100730, end: 20100831

REACTIONS (5)
  - CHROMATURIA [None]
  - HEPATIC ENZYME INCREASED [None]
  - HEPATIC FUNCTION ABNORMAL [None]
  - JAUNDICE [None]
  - PRURITUS GENERALISED [None]
